FAERS Safety Report 11603621 (Version 2)
Quarter: 2015Q4

REPORT INFORMATION
  Report Type: Spontaneous
  Country: US (occurrence: US)
  Receive Date: 20151007
  Receipt Date: 20151013
  Transmission Date: 20160304
  Serious: Yes (Life-Threatening, Hospitalization)
  Sender: FDA-Public Use
  Company Number: US-HORIZON-RAV-0080-2015

PATIENT
  Age: 69 Year
  Sex: Male

DRUGS (13)
  1. IMODIUM [Concomitant]
     Active Substance: LOPERAMIDE HYDROCHLORIDE
  2. LISINOPRIL. [Concomitant]
     Active Substance: LISINOPRIL
  3. GLUCOSAMINE [Concomitant]
     Active Substance: GLUCOSAMINE
  4. CHONDROITIN [Concomitant]
     Active Substance: CHONDROITIN
  5. VITAMIN B [Concomitant]
     Active Substance: VITAMIN B
  6. RAVICTI [Suspect]
     Active Substance: GLYCEROL PHENYLBUTYRATE
     Indication: ORNITHINE TRANSCARBAMOYLASE DEFICIENCY
     Dosage: 5 ML THRICE DAILY
     Dates: start: 20130912
  7. TUMS [Concomitant]
     Active Substance: CALCIUM CARBONATE
  8. L-CITRULLINE [Concomitant]
     Active Substance: CITRULLINE
  9. FUROSEMIDE. [Concomitant]
     Active Substance: FUROSEMIDE
  10. ASA [Concomitant]
     Active Substance: ASPIRIN
  11. MVI [Concomitant]
     Active Substance: VITAMINS
  12. PREDNISONE. [Suspect]
     Active Substance: PREDNISONE
     Indication: SCIATICA
     Dates: start: 20150910, end: 20150913
  13. VITAMIN D [Concomitant]
     Active Substance: CHOLECALCIFEROL

REACTIONS (2)
  - Ammonia increased [Recovered/Resolved]
  - Loss of consciousness [Recovered/Resolved]

NARRATIVE: CASE EVENT DATE: 20150914
